FAERS Safety Report 6871062-7 (Version None)
Quarter: 2010Q3

REPORT INFORMATION
  Report Type: 
  Country: None (occurrence: None)
  Receive Date: 20100723
  Receipt Date: 20100721
  Transmission Date: 20110219
  Serious: Yes (Death, Other)
  Sender: FDA-Public Use
  Company Number: AU-BAXTER-2010BH017824

PATIENT
  Age: 65 Year
  Sex: Female

DRUGS (6)
  1. DIANEAL [Suspect]
     Indication: PERITONEAL DIALYSIS
     Route: 033
     Dates: start: 20100513
  2. DIANEAL [Suspect]
     Route: 033
     Dates: start: 20100513
  3. DIANEAL [Suspect]
     Route: 033
     Dates: start: 20100513
  4. DIANEAL LOW CALCIUM WITH DEXTROSE 4.25% AND CALCIUM 2.5MEQ/L [Suspect]
     Indication: PERITONEAL DIALYSIS
     Route: 033
     Dates: start: 20100513
  5. DIANEAL LOW CALCIUM WITH DEXTROSE 4.25% AND CALCIUM 2.5MEQ/L [Suspect]
     Indication: PERITONEAL DIALYSIS
     Route: 033
     Dates: start: 20100513
  6. DIANEAL LOW CALCIUM WITH DEXTROSE 4.25% AND CALCIUM 2.5MEQ/L [Suspect]
     Indication: PERITONEAL DIALYSIS
     Route: 033
     Dates: start: 20100513

REACTIONS (2)
  - DEATH [None]
  - MULTIMORBIDITY [None]
